FAERS Safety Report 19439671 (Version 1)
Quarter: 2021Q2

REPORT INFORMATION
  Report Type: Spontaneous
  Country: FR (occurrence: FR)
  Receive Date: 20210619
  Receipt Date: 20210619
  Transmission Date: 20210717
  Serious: Yes (Hospitalization, Other)
  Sender: FDA-Public Use
  Company Number: FR-CANTON LABORATORIES, LLC-2112892

PATIENT
  Age: 63 Year
  Sex: Female

DRUGS (3)
  1. VAXZEVRIA [Suspect]
     Active Substance: AZD-1222
     Route: 065
     Dates: start: 20210323, end: 20210323
  2. NAPROSYN [Suspect]
     Active Substance: NAPROXEN
     Indication: BACK PAIN
     Route: 065
     Dates: start: 20210408
  3. CARDENSIEL [Concomitant]
     Active Substance: BISOPROLOL FUMARATE
     Route: 065

REACTIONS (1)
  - Immune thrombocytopenia [Recovered/Resolved]

NARRATIVE: CASE EVENT DATE: 20210415
